FAERS Safety Report 12431705 (Version 1)
Quarter: 2016Q2

REPORT INFORMATION
  Report Type: Other
  Country: US (occurrence: US)
  Receive Date: 20160603
  Receipt Date: 20160603
  Transmission Date: 20160815
  Serious: Yes (Disabling)
  Sender: FDA-Public Use
  Company Number: US-GLENMARK PHARMACEUTICALS INC, USA.-2016GMK023056

PATIENT

DRUGS (2)
  1. OXCARBAZEPINE. [Suspect]
     Active Substance: OXCARBAZEPINE
     Indication: PRODUCT USED FOR UNKNOWN INDICATION
     Dosage: UNK
  2. TRILEPTAL [Suspect]
     Active Substance: OXCARBAZEPINE
     Indication: PRODUCT USED FOR UNKNOWN INDICATION
     Dosage: UNK

REACTIONS (21)
  - Dry mouth [Unknown]
  - Coordination abnormal [Unknown]
  - Libido decreased [Unknown]
  - Disability [Unknown]
  - Condition aggravated [Unknown]
  - Depressed mood [Unknown]
  - Agitation [Unknown]
  - Thirst [Unknown]
  - Crying [Unknown]
  - Insomnia [Unknown]
  - Paranoia [Unknown]
  - Speech disorder [Unknown]
  - Anxiety [Unknown]
  - Mood swings [Unknown]
  - Constipation [Unknown]
  - Disturbance in attention [Unknown]
  - Balance disorder [Unknown]
  - Pollakiuria [Unknown]
  - Fear [Unknown]
  - Weight decreased [Unknown]
  - Asthenia [Unknown]
